FAERS Safety Report 12505093 (Version 2)
Quarter: 2016Q3

REPORT INFORMATION
  Report Type: Spontaneous
  Country: US (occurrence: US)
  Receive Date: 20160628
  Receipt Date: 20160801
  Transmission Date: 20161109
  Serious: No
  Sender: FDA-Public Use
  Company Number: US-GLAXOSMITHKLINE-US2016085963

PATIENT
  Age: 85 Year
  Sex: Female

DRUGS (4)
  1. NAMENDA [Concomitant]
     Active Substance: MEMANTINE HYDROCHLORIDE
  2. ADVAIR DISKUS [Suspect]
     Active Substance: FLUTICASONE PROPIONATE\SALMETEROL XINAFOATE
     Indication: PRODUCT USED FOR UNKNOWN INDICATION
     Dosage: 1 PUFF(S), BID
     Route: 055
  3. DALIRESP [Concomitant]
     Active Substance: ROFLUMILAST
  4. IPRATROPIUM NASAL SPRAY [Concomitant]

REACTIONS (3)
  - Product quality issue [Unknown]
  - Sputum increased [Unknown]
  - Drug ineffective [Unknown]

NARRATIVE: CASE EVENT DATE: 201606
